FAERS Safety Report 15206787 (Version 1)
Quarter: 2018Q3

REPORT INFORMATION
  Report Type: Spontaneous
  Country: US (occurrence: US)
  Receive Date: 20180628
  Receipt Date: 20180628
  Transmission Date: 20181010
  Serious: Yes (Hospitalization)
  Sender: FDA-Public Use
  Company Number: None

PATIENT
  Age: 64 Year
  Sex: Male
  Weight: 75.52 kg

DRUGS (3)
  1. DEXAMETHASONE. [Suspect]
     Active Substance: DEXAMETHASONE
     Dates: end: 20180522
  2. VELCADE [Suspect]
     Active Substance: BORTEZOMIB
     Dates: end: 20180521
  3. LENALIDOMIDE (CC?5013) [Suspect]
     Active Substance: LENALIDOMIDE
     Dates: end: 20180527

REACTIONS (4)
  - Pneumonia [None]
  - Failure to thrive [None]
  - Confusional state [None]
  - Bacterial infection [None]

NARRATIVE: CASE EVENT DATE: 20180621
